FAERS Safety Report 7399773-8 (Version None)
Quarter: 2011Q2

REPORT INFORMATION
  Report Type: 
  Country: None (occurrence: None)
  Receive Date: 20110407
  Receipt Date: 20110323
  Transmission Date: 20111010
  Serious: No
  Sender: FDA-Public Use
  Company Number: US-JNJFOC-20090201020

PATIENT
  Sex: Male

DRUGS (2)
  1. FENTANYL CITRATE [Suspect]
     Indication: ILL-DEFINED DISORDER
     Route: 062
  2. DURAGESIC [Suspect]
     Indication: PAIN
     Route: 062

REACTIONS (5)
  - OVERDOSE [None]
  - PRODUCT QUALITY ISSUE [None]
  - APPLICATION SITE BLEEDING [None]
  - APPLICATION SITE RASH [None]
  - INCORRECT DRUG ADMINISTRATION DURATION [None]
